FAERS Safety Report 7262952-4 (Version None)
Quarter: 2011Q1

REPORT INFORMATION
  Report Type: 
  Country: None (occurrence: None)
  Receive Date: 20110130
  Receipt Date: 20101012
  Transmission Date: 20110831
  Serious: No
  Sender: FDA-Public Use
  Company Number: US-ABBOTT-10P-163-0678799-00

PATIENT
  Sex: Male
  Weight: 86.26 kg

DRUGS (3)
  1. HUMIRA [Suspect]
     Indication: RHEUMATOID ARTHRITIS
     Dates: start: 20080101
  2. UNKNOWN PAIN MEDICATION [Concomitant]
     Indication: PAIN
  3. TACLONEX [Concomitant]
     Indication: PSORIASIS

REACTIONS (4)
  - PSORIASIS [None]
  - INCREASED TENDENCY TO BRUISE [None]
  - SKIN ATROPHY [None]
  - RHEUMATOID ARTHRITIS [None]
